FAERS Safety Report 16592003 (Version 1)
Quarter: 2019Q3

REPORT INFORMATION
  Report Type: Spontaneous
  Country: US (occurrence: US)
  Receive Date: 20190718
  Receipt Date: 20190718
  Transmission Date: 20191004
  Serious: No
  Sender: FDA-Public Use
  Company Number: PHEH2019US029977

PATIENT
  Sex: Male

DRUGS (1)
  1. VOTRIENT [Suspect]
     Active Substance: PAZOPANIB HYDROCHLORIDE
     Indication: RENAL CANCER
     Dosage: 3 DF, QD (600 MG TOTAL, ON AN EMPTY STOMACH 1 HOURS BEFORE OR 2 HOURS AFTER MEALS)
     Route: 048

REACTIONS (2)
  - Product dose omission [Recovered/Resolved]
  - Malaise [Recovered/Resolved]
